FAERS Safety Report 24926105 (Version 1)
Quarter: 2025Q1

REPORT INFORMATION
  Report Type: Spontaneous
  Country: GB (occurrence: GB)
  Receive Date: 20250205
  Receipt Date: 20250205
  Transmission Date: 20250409
  Serious: Yes (Other)
  Sender: SANOFI AVENTIS
  Company Number: None

PATIENT
  Sex: Female

DRUGS (1)
  1. AFLIBERCEPT [Suspect]
     Active Substance: AFLIBERCEPT
     Indication: Adverse drug reaction

REACTIONS (1)
  - Iridocyclitis [Not Recovered/Not Resolved]

NARRATIVE: CASE EVENT DATE: 20250121
